FAERS Safety Report 9298218 (Version 1)
Quarter: 2013Q2

REPORT INFORMATION
  Report Type: Spontaneous
  Country: FR (occurrence: FR)
  Receive Date: 20130520
  Receipt Date: 20130520
  Transmission Date: 20140414
  Serious: Yes (Other)
  Sender: FDA-Public Use
  Company Number: FR-AMGEN-FRACT2013035406

PATIENT
  Age: 43 Year
  Sex: Male

DRUGS (3)
  1. ETANERCEPT [Suspect]
     Indication: RHEUMATOID ARTHRITIS
     Dosage: UNK
  2. HUMIRA [Concomitant]
     Dosage: UNK
  3. METHYLPREDNISOLONE [Concomitant]
     Dosage: UNK

REACTIONS (3)
  - Myelitis [Recovered/Resolved]
  - Hypokinesia [Recovered/Resolved]
  - Hypoaesthesia [Recovered/Resolved]
